FAERS Safety Report 14677088 (Version 1)
Quarter: 2018Q1

REPORT INFORMATION
  Report Type: Spontaneous
  Country: US (occurrence: US)
  Receive Date: 20180323
  Receipt Date: 20180323
  Transmission Date: 20180509
  Serious: No
  Sender: FDA-Public Use
  Company Number: None

PATIENT
  Age: 75 Year
  Sex: Female

DRUGS (1)
  1. JAKAFI [Suspect]
     Active Substance: RUXOLITINIB

REACTIONS (6)
  - Cystitis [None]
  - Hot flush [None]
  - Contusion [None]
  - Fatigue [None]
  - Rash [None]
  - Neutropenia [None]

NARRATIVE: CASE EVENT DATE: 20180323
